FAERS Safety Report 6527055-2 (Version None)
Quarter: 2009Q4

REPORT INFORMATION
  Report Type: 
  Country: None (occurrence: None)
  Receive Date: 20091229
  Receipt Date: 20091218
  Transmission Date: 20100525
  Serious: Yes (Death)
  Sender: FDA-Public Use
  Company Number: CQT2-2009-00040

PATIENT
  Age: 55 Year
  Sex: Male
  Weight: 86 kg

DRUGS (7)
  1. ANAGRELIDE HCL [Suspect]
     Indication: ESSENTIAL THROMBOCYTHAEMIA
     Dosage: 1 MG, 2X/DAY:QD, ORAL
     Route: 048
     Dates: start: 20051010
  2. ACETYLSALICYLIC ACID SRT [Suspect]
     Indication: ESSENTIAL THROMBOCYTHAEMIA
     Dosage: 100 MG, 1X/DAY:QD, ORAL
     Route: 048
     Dates: start: 20060505
  3. ACENOCUMAROL(ACENOCOUMAROL) UNKNOWN [Suspect]
     Indication: ESSENTIAL THROMBOCYTHAEMIA
     Dosage: 3 MG, 1X/DAY:QD, ORAL
     Route: 048
     Dates: start: 19960523
  4. HYDROXYUREA [Suspect]
     Indication: ESSENTIAL THROMBOCYTHAEMIA
     Dosage: 500 MG, 2X/DAY:BID, ORAL
     Route: 048
     Dates: start: 19971205, end: 20051009
  5. ATENOLOL [Concomitant]
  6. GLICLAZIDE (GLICLAZIDE) [Concomitant]
  7. TAMSULOSINA (TAMSULOSIN HYDROCHLORIDE) [Concomitant]

REACTIONS (13)
  - ABDOMINAL DISTENSION [None]
  - AREFLEXIA [None]
  - BRAIN OEDEMA [None]
  - CARDIO-RESPIRATORY ARREST [None]
  - CORNEAL REFLEX DECREASED [None]
  - DIZZINESS [None]
  - ESSENTIAL THROMBOCYTHAEMIA [None]
  - GASTROINTESTINAL HYPERMOTILITY [None]
  - HAEMATOCRIT DECREASED [None]
  - HYPOTENSION [None]
  - LOSS OF CONSCIOUSNESS [None]
  - MYDRIASIS [None]
  - MYOCARDIAL INFARCTION [None]
